FAERS Safety Report 9236727 (Version 5)
Quarter: 2014Q1

REPORT INFORMATION
  Report Type: Report from Study
  Country: CA (occurrence: CA)
  Receive Date: 20130417
  Receipt Date: 20140327
  Transmission Date: 20141002
  Serious: Yes (Hospitalization, Other)
  Sender: FDA-Public Use
  Company Number: CA-ROCHE-1021141

PATIENT
  Age: 62 Year
  Sex: Female
  Weight: 56 kg

DRUGS (11)
  1. AVASTIN [Suspect]
     Indication: HEREDITARY HAEMORRHAGIC TELANGIECTASIA
     Route: 042
     Dates: start: 20111202
  2. AVASTIN [Suspect]
     Route: 042
     Dates: start: 20120106
  3. AVASTIN [Suspect]
     Route: 042
  4. AVASTIN [Suspect]
     Route: 042
     Dates: start: 201111
  5. AVASTIN [Suspect]
     Route: 042
     Dates: start: 20120203
  6. AVASTIN [Suspect]
     Route: 042
     Dates: start: 20131029
  7. ZOPICLONE [Concomitant]
     Route: 065
  8. CLONAZEPAM [Concomitant]
     Route: 065
  9. LASIX [Concomitant]
     Route: 065
  10. METHYLPREDNISOLONE [Concomitant]
     Indication: PREMEDICATION
     Route: 042
     Dates: start: 20120120, end: 20120824
  11. SOLU-MEDROL [Concomitant]
     Route: 042
     Dates: start: 20120120, end: 20120824

REACTIONS (24)
  - Tongue haemorrhage [Recovered/Resolved]
  - Gastrointestinal haemorrhage [Recovering/Resolving]
  - Rectal haemorrhage [Recovered/Resolved]
  - Abdominal pain [Recovered/Resolved]
  - Lymphocyte count decreased [Unknown]
  - Blood iron decreased [Unknown]
  - Ascites [Not Recovered/Not Resolved]
  - Arthralgia [Not Recovered/Not Resolved]
  - Blood test abnormal [Unknown]
  - Malaise [Recovered/Resolved]
  - Headache [Unknown]
  - Productive cough [Not Recovered/Not Resolved]
  - Bronchitis [Not Recovered/Not Resolved]
  - Cough [Not Recovered/Not Resolved]
  - Weight increased [Unknown]
  - Haemoglobin decreased [Unknown]
  - Mean cell haemoglobin decreased [Unknown]
  - Red cell distribution width increased [Unknown]
  - Red cell distribution width increased [Unknown]
  - Neutrophil count increased [Unknown]
  - Transferrin saturation decreased [Unknown]
  - Dyspnoea [Recovered/Resolved]
  - Cough [Unknown]
  - Off label use [Unknown]
